FAERS Safety Report 6958499-2 (Version None)
Quarter: 2010Q3

REPORT INFORMATION
  Report Type: 
  Country: None (occurrence: None)
  Receive Date: 20100831
  Receipt Date: 20100827
  Transmission Date: 20110219
  Serious: Yes (Hospitalization)
  Sender: FDA-Public Use
  Company Number: GXKR2010DE09646

PATIENT
  Sex: Male

DRUGS (8)
  1. ACETYLSALICYLIC ACID SRT [Suspect]
     Indication: ATRIAL FIBRILLATION
     Dosage: 100 MG, QD
     Route: 048
     Dates: start: 20100501, end: 20100708
  2. CYMBALTA [Suspect]
     Indication: PAIN IN EXTREMITY
     Dosage: 60 MG-0-30 MG
     Route: 048
     Dates: start: 20100604, end: 20100703
  3. PREDNISOLONE [Concomitant]
  4. PANTOPRAZOLE SODIUM [Concomitant]
  5. CALCILAC KT [Concomitant]
  6. ATACAND [Concomitant]
  7. VALDOXAN [Concomitant]
  8. TAMSULOSIN HCL [Concomitant]

REACTIONS (1)
  - HYPONATRAEMIA [None]
